FAERS Safety Report 23156720 (Version 3)
Quarter: 2024Q2

REPORT INFORMATION
  Report Type: Report from Study
  Country: US (occurrence: US)
  Receive Date: 20231107
  Receipt Date: 20240523
  Transmission Date: 20240716
  Serious: Yes (Hospitalization)
  Sender: FDA-Public Use
  Company Number: US-ABBVIE-5385488

PATIENT
  Sex: Female

DRUGS (2)
  1. RINVOQ [Suspect]
     Active Substance: UPADACITINIB
     Indication: Psoriatic arthropathy
     Route: 048
     Dates: start: 20230726
  2. RINVOQ [Suspect]
     Active Substance: UPADACITINIB
     Indication: Psoriatic arthropathy
     Dosage: LAST ADMIN DATE: JUL 2023
     Route: 048
     Dates: start: 20230720

REACTIONS (9)
  - Blood pressure increased [Recovered/Resolved]
  - Arthralgia [Recovering/Resolving]
  - Sleep apnoea syndrome [Unknown]
  - Psoriasis [Recovered/Resolved]
  - Rash macular [Unknown]
  - Muscle spasms [Recovering/Resolving]
  - Pain [Unknown]
  - Therapeutic product effect incomplete [Recovered/Resolved]
  - Alopecia [Unknown]

NARRATIVE: CASE EVENT DATE: 20230101
